FAERS Safety Report 14144840 (Version 1)
Quarter: 2017Q4

REPORT INFORMATION
  Report Type: Spontaneous
  Country: US (occurrence: US)
  Receive Date: 20171031
  Receipt Date: 20171031
  Transmission Date: 20180321
  Serious: No
  Sender: FDA-Public Use
  Company Number: US-MISSION PHARMACAL COMPANY-2032807

PATIENT
  Age: 51 Year
  Sex: Female

DRUGS (4)
  1. TYLENOL PM [Concomitant]
     Active Substance: ACETAMINOPHEN\DIPHENHYDRAMINE
     Route: 065
  2. THIOLA [Suspect]
     Active Substance: TIOPRONIN
     Indication: NEPHROLITHIASIS
     Route: 065
     Dates: start: 20151224
  3. POTASSIUM CITRATE. [Concomitant]
     Active Substance: POTASSIUM CITRATE
     Route: 065
  4. ADVIL PM [Concomitant]
     Active Substance: DIPHENHYDRAMINE CITRATE\IBUPROFEN
     Route: 065

REACTIONS (9)
  - Pain in extremity [Unknown]
  - Abdominal pain upper [Unknown]
  - Myalgia [Unknown]
  - Weight increased [Unknown]
  - Diarrhoea [Unknown]
  - Drug ineffective [Unknown]
  - Ageusia [Recovered/Resolved]
  - Fatigue [Unknown]
  - Arthralgia [Unknown]
